FAERS Safety Report 8817092 (Version 1)
Quarter: 2012Q4

REPORT INFORMATION
  Report Type: Spontaneous
  Country: US (occurrence: None)
  Receive Date: 20121003
  Receipt Date: 20121003
  Transmission Date: 20130627
  Serious: Yes (Other)
  Sender: FDA-Public Use
  Company Number: None

PATIENT
  Age: 52 Year
  Sex: Female

DRUGS (17)
  1. ALENDRONATE [Suspect]
     Dosage: 1 dose
     Route: 048
  2. SUPADRINE [Concomitant]
  3. GUAFENESIN [Concomitant]
  4. PANAPROZELE [Concomitant]
  5. FEXOFENADINE [Concomitant]
  6. AZATHIOPRINE [Concomitant]
  7. CALCIUM CARBONATE [Concomitant]
  8. MAGNESIUM [Concomitant]
  9. ECHINACEA [Concomitant]
  10. TUMS ANTACID [Concomitant]
  11. RANITIDINE [Concomitant]
  12. ACETAMINOPHEN [Concomitant]
  13. IBUPROFEN [Concomitant]
  14. ALEEVE [Concomitant]
  15. VICODIN [Concomitant]
  16. AZITHROMYCIN [Concomitant]
  17. VITAMIN D [Suspect]

REACTIONS (2)
  - Ill-defined disorder [None]
  - Feeling abnormal [None]
